FAERS Safety Report 9775295 (Version 1)
Quarter: 2013Q4

REPORT INFORMATION
  Report Type: Spontaneous
  Country: IT (occurrence: IT)
  Receive Date: 20131220
  Receipt Date: 20131220
  Transmission Date: 20140711
  Serious: Yes (Other)
  Sender: FDA-Public Use
  Company Number: IT-BAYER-2013-151894

PATIENT
  Sex: Male
  Weight: 1.52 kg

DRUGS (2)
  1. ACETYLSALICYLIC ACID({=100 MG) [Suspect]
     Indication: THROMBOSIS PROPHYLAXIS
     Dosage: UNK
     Route: 064
  2. BETAMETHASONE [Concomitant]
     Route: 064

REACTIONS (5)
  - Heart block congenital [None]
  - Neonatal respiratory distress syndrome [None]
  - Low birth weight baby [None]
  - Premature baby [None]
  - Bradycardia neonatal [None]
